FAERS Safety Report 9017221 (Version 2)
Quarter: 2013Q2

REPORT INFORMATION
  Report Type: Spontaneous
  Country: US (occurrence: US)
  Receive Date: 20130117
  Receipt Date: 20130407
  Transmission Date: 20140414
  Serious: No
  Sender: FDA-Public Use
  Company Number: US-ASTRAZENECA-2013SE02885

PATIENT
  Age: 61 Year
  Sex: Female
  Weight: 83.9 kg

DRUGS (7)
  1. CRESTOR [Suspect]
     Indication: BLOOD CHOLESTEROL INCREASED
     Route: 048
     Dates: start: 20130109
  2. NABUMETONE [Concomitant]
     Indication: OSTEOARTHRITIS
  3. PREMARIN CREAM [Concomitant]
     Indication: HORMONE REPLACEMENT THERAPY
  4. SYNTHROID [Concomitant]
     Indication: THYROIDECTOMY
  5. MACRODANTIN [Concomitant]
     Indication: BLADDER DISORDER
  6. MICARDIS [Concomitant]
     Indication: HYPERTENSION
  7. ASPIRIN [Concomitant]

REACTIONS (2)
  - Flushing [Unknown]
  - Rash [Unknown]
